FAERS Safety Report 20262869 (Version 2)
Quarter: 2022Q1

REPORT INFORMATION
  Report Type: Spontaneous
  Country: US (occurrence: US)
  Receive Date: 20211231
  Receipt Date: 20220112
  Transmission Date: 20220423
  Serious: No
  Sender: FDA-Public Use
  Company Number: US-JNJFOC-20211250813

PATIENT

DRUGS (1)
  1. ROGAINE [Suspect]
     Active Substance: MINOXIDIL
     Indication: Product used for unknown indication
     Route: 061

REACTIONS (1)
  - Drug ineffective [Unknown]
